FAERS Safety Report 7571390-6 (Version None)
Quarter: 2011Q2

REPORT INFORMATION
  Report Type: 
  Country: None (occurrence: None)
  Receive Date: 20110624
  Receipt Date: 20110608
  Transmission Date: 20111010
  Serious: No
  Sender: FDA-Public Use
  Company Number: US-B.I. PHARMACEUTICALS,INC./RIDGEFIELD-2011-BP-14950BP

PATIENT
  Age: 65 Year
  Sex: Female

DRUGS (3)
  1. LISINOPRIL [Concomitant]
     Indication: HYPERTENSION
     Route: 048
  2. METFORMIN HCL [Concomitant]
     Indication: DIABETES MELLITUS
     Route: 048
  3. AGGRENOX [Suspect]
     Indication: CEREBROVASCULAR ACCIDENT
     Route: 048
     Dates: start: 20060101

REACTIONS (8)
  - NAUSEA [None]
  - DIARRHOEA [None]
  - MEMORY IMPAIRMENT [None]
  - FATIGUE [None]
  - DYSPEPSIA [None]
  - HAEMATOCHEZIA [None]
  - ASTHENIA [None]
  - ABDOMINAL PAIN UPPER [None]
